FAERS Safety Report 9410957 (Version 2)
Quarter: 2013Q3

REPORT INFORMATION
  Report Type: Report from Study
  Country: NL (occurrence: NL)
  Receive Date: 20130719
  Receipt Date: 20130828
  Transmission Date: 20140515
  Serious: Yes (Other)
  Sender: FDA-Public Use
  Company Number: NL-ABBOTT-13P-114-1118183-00

PATIENT
  Age: 84 Year
  Sex: Male
  Weight: 79.5 kg

DRUGS (3)
  1. LEUPRORELINE (LUCRIN) [Suspect]
     Indication: PROSTATE CANCER
     Route: 058
     Dates: start: 20130118
  2. AMLODIPINE MALEATE [Concomitant]
     Indication: HYPERTENSION
     Route: 048
     Dates: start: 1998
  3. PERINDOPRIL + INDAPAMIDE MYL [Concomitant]
     Indication: HYPERTENSION
     Dosage: 4/1.25 MG
     Route: 048
     Dates: start: 1998

REACTIONS (7)
  - Skin cancer [Recovered/Resolved]
  - Waist circumference increased [Not Recovered/Not Resolved]
  - Hot flush [Not Recovered/Not Resolved]
  - Headache [Not Recovered/Not Resolved]
  - Nausea [Not Recovered/Not Resolved]
  - Rash [Not Recovered/Not Resolved]
  - Pruritus [Not Recovered/Not Resolved]
